FAERS Safety Report 4302212-4 (Version None)
Quarter: 2004Q1

REPORT INFORMATION
  Report Type: 
  Country: None (occurrence: None)
  Receive Date: 20040220
  Receipt Date: 20040205
  Transmission Date: 20041129
  Serious: Yes (Death)
  Sender: FDA-Public Use
  Company Number: 2004-06635

PATIENT
  Age: 22 Year
  Sex: Female
  Weight: 42.8 kg

DRUGS (8)
  1. TENOFOVIR DF [Suspect]
     Indication: HIV INFECTION
     Dosage: 300 MG QD PO
     Route: 048
     Dates: start: 20031126
  2. LOPINAVIR/RITONAVIR [Concomitant]
  3. ATAZANAVIR SULFATE [Concomitant]
  4. HELM COTRIMOXAZOLE [Concomitant]
  5. CITALOPRAM [Concomitant]
  6. MONTELUKAST [Concomitant]
  7. PANTOPRAZOLE [Concomitant]
  8. ROSIGLITAZONE MALEATE [Concomitant]

REACTIONS (16)
  - ABDOMINAL PAIN LOWER [None]
  - BRONCHITIS [None]
  - COUGH [None]
  - CULTURE URINE POSITIVE [None]
  - DIARRHOEA [None]
  - HAEMOPTYSIS [None]
  - NASAL CONGESTION [None]
  - NEPHRITIS [None]
  - PHARYNGOLARYNGEAL PAIN [None]
  - PULMONARY EMBOLISM [None]
  - PYREXIA [None]
  - RENAL IMPAIRMENT [None]
  - SINUSITIS [None]
  - SPLENOMEGALY [None]
  - STAPHYLOCOCCAL INFECTION [None]
  - SUDDEN DEATH [None]
